FAERS Safety Report 7544063-3 (Version None)
Quarter: 2011Q2

REPORT INFORMATION
  Report Type: 
  Country: None (occurrence: None)
  Receive Date: 20110613
  Receipt Date: 20051007
  Transmission Date: 20111010
  Serious: Yes (Other)
  Sender: FDA-Public Use
  Company Number: PHHO2005CA16077

PATIENT
  Sex: Female

DRUGS (8)
  1. SYNTHROID [Concomitant]
  2. BROMOCRIPTINE MESYLATE [Concomitant]
  3. RHINOCORT [Concomitant]
  4. CLARITIN [Concomitant]
  5. SANDOSTATIN LAR [Suspect]
     Indication: PITUITARY TUMOUR
     Dosage: 30 MG EVERY 4 WEEKS
     Route: 058
     Dates: start: 20030112
  6. VITAMIN D [Concomitant]
  7. ACETAMINOPHEN [Concomitant]
  8. FOSAMAX [Concomitant]

REACTIONS (1)
  - HEART RATE INCREASED [None]
